FAERS Safety Report 25871836 (Version 1)
Quarter: 2025Q4

REPORT INFORMATION
  Report Type: Spontaneous
  Country: US (occurrence: US)
  Receive Date: 20251001
  Receipt Date: 20251001
  Transmission Date: 20260117
  Serious: Yes (Hospitalization)
  Sender: TEVA
  Company Number: US-TEVA-VS-3375379

PATIENT
  Age: 80 Year
  Sex: Male

DRUGS (2)
  1. HYDROXYCHLOROQUINE [Suspect]
     Active Substance: HYDROXYCHLOROQUINE
     Indication: Rheumatoid arthritis
     Route: 065
  2. PREDNISONE [Suspect]
     Active Substance: PREDNISONE
     Indication: Rheumatoid arthritis
     Dosage: LOW DOSE
     Route: 065

REACTIONS (7)
  - Myopathy [Recovering/Resolving]
  - Respiratory disorder [Recovering/Resolving]
  - Weight decreased [Recovering/Resolving]
  - Cough decreased [Recovering/Resolving]
  - Hypervolaemia [Recovering/Resolving]
  - Cardiac dysfunction [Recovering/Resolving]
  - Pneumonia [Recovering/Resolving]
